FAERS Safety Report 5470578-8 (Version None)
Quarter: 2007Q3

REPORT INFORMATION
  Report Type: 
  Country: None (occurrence: None)
  Receive Date: 20070928
  Receipt Date: 20070917
  Transmission Date: 20080115
  Serious: Yes (Other)
  Sender: FDA-Public Use
  Company Number: PT-JNJFOC-20050106451

PATIENT
  Sex: Male
  Weight: 68 kg

DRUGS (8)
  1. TMC114 [Suspect]
     Route: 048
     Dates: start: 20040427, end: 20050105
  2. TMC114 [Suspect]
     Route: 048
     Dates: start: 20040427, end: 20050105
  3. TMC114 [Suspect]
     Indication: HIV INFECTION
     Route: 048
     Dates: start: 20040427, end: 20050105
  4. RITONAVIR [Suspect]
     Route: 048
  5. RITONAVIR [Suspect]
     Route: 048
  6. RITONAVIR [Suspect]
     Indication: HIV INFECTION
     Route: 048
  7. DIDANOSINE [Concomitant]
     Indication: HIV INFECTION
     Route: 048
  8. STAVUDINE [Concomitant]
     Route: 048

REACTIONS (1)
  - SUPRAVENTRICULAR TACHYCARDIA [None]
